FAERS Safety Report 4341900-0 (Version None)
Quarter: 2004Q2

REPORT INFORMATION
  Report Type: 
  Country: None (occurrence: None)
  Receive Date: 20040420
  Receipt Date: 20040302
  Transmission Date: 20050107
  Serious: Yes (Other)
  Sender: FDA-Public Use
  Company Number: US-BRISTOL-MYERS SQUIBB COMPANY-12521423

PATIENT
  Age: 64 Year
  Sex: Female

DRUGS (6)
  1. TEQUIN [Suspect]
     Indication: UROSEPSIS
     Route: 042
  2. LANSOPRAZOLE [Concomitant]
  3. LOSARTAN POTASSIUM + HCTZ [Concomitant]
     Dosage: 100/25 MG DAILY STOPPED AT START OF HOSPITALIZATION
  4. VERAPAMIL [Concomitant]
     Dosage: STOPPED AT START OF HOSPITALIZATION
  5. AZITHROMYCIN [Concomitant]
     Indication: PNEUMONIA
     Dosage: STOPPED AT START OF HOSPITALIZATION
  6. ATORVASTATIN [Concomitant]
     Dosage: STOPPED AT START OF HOSPITALIZATION

REACTIONS (3)
  - CARDIAC FAILURE CONGESTIVE [None]
  - ELECTROCARDIOGRAM ST SEGMENT ABNORMAL [None]
  - HYPERGLYCAEMIA [None]
